FAERS Safety Report 16831695 (Version 1)
Quarter: 2019Q3

REPORT INFORMATION
  Report Type: Spontaneous
  Country: GB (occurrence: GB)
  Receive Date: 20190920
  Receipt Date: 20190920
  Transmission Date: 20191005
  Serious: Yes (Disabling)
  Sender: FDA-Public Use
  Company Number: GB-ACCORD-155110

PATIENT
  Age: 85 Year
  Sex: Female
  Weight: 71 kg

DRUGS (21)
  1. LEVOTHYROXINE. [Concomitant]
     Active Substance: LEVOTHYROXINE
     Dosage: EACH MORNING
     Dates: start: 20190322
  2. MEBEVERINE [Concomitant]
     Active Substance: MEBEVERINE
     Dosage: 20 MINUTES BEFORE FOOD
     Dates: start: 20190322
  3. HYLO-TEAR [Concomitant]
     Dosage: USE AS DIRECTED AS PER SPECIALIST
     Dates: start: 20190322
  4. AMLODIPINE [Concomitant]
     Active Substance: AMLODIPINE BESYLATE
     Dates: start: 20190322
  5. BISOPROLOL [Concomitant]
     Active Substance: BISOPROLOL
     Dates: start: 20190322
  6. LANSOPRAZOLE. [Concomitant]
     Active Substance: LANSOPRAZOLE
     Dosage: IN MORNING WITH WATER 30 TO 60 MINS BE...
     Dates: start: 20190322
  7. CITALOPRAM [Concomitant]
     Active Substance: CITALOPRAM HYDROBROMIDE
     Dates: start: 20190322
  8. ISOSORBIDE. [Suspect]
     Active Substance: ISOSORBIDE
     Indication: PRODUCT USED FOR UNKNOWN INDICATION
     Dates: start: 20190822
  9. FUROSEMIDE. [Concomitant]
     Active Substance: FUROSEMIDE
     Dosage: EACH MORNING
     Dates: start: 20190322
  10. HYPROMELLOSE/HYPROMELLOSE PHTHALATE [Concomitant]
     Dosage: INSTIL ONE DROP TO BOTH EYES AS DIRECTED WHEN R...
     Dates: start: 20190110, end: 20190822
  11. PARACETAMOL [Concomitant]
     Active Substance: ACETAMINOPHEN
     Dosage: 4 TIMES/DAY
     Dates: start: 20190513
  12. ATORVASTATIN [Concomitant]
     Active Substance: ATORVASTATIN
     Dates: start: 20190322
  13. GLYCERYL TRINITRATE [Concomitant]
     Active Substance: NITROGLYCERIN
     Dates: start: 20190322
  14. FENBID [Concomitant]
     Active Substance: IBUPROFEN
     Dates: start: 20190523
  15. LAXIDO [Concomitant]
     Active Substance: POLYETHYLENE GLYCOL 3350\POTASSIUM CHLORIDE\SODIUM BICARBONATE\SODIUM CHLORIDE
     Dosage: AT NIGHT
     Dates: start: 20190322
  16. ISOSORBIDE. [Suspect]
     Active Substance: ISOSORBIDE
     Indication: PRODUCT USED FOR UNKNOWN INDICATION
     Dosage: EACH MORNING
     Dates: start: 20190809
  17. ACETYLSALICYLIC ACID [Concomitant]
     Active Substance: ASPIRIN
     Dates: start: 20190322
  18. CANDESARTAN. [Concomitant]
     Active Substance: CANDESARTAN
     Dates: start: 20190322
  19. LACTULOSE. [Concomitant]
     Active Substance: LACTULOSE
     Dosage: AT NIGHT
     Dates: start: 20190322
  20. HYALURONIC ACID [Concomitant]
     Active Substance: HYALURONIC ACID
     Dosage: USE AS DIRECTED WHEN REQUIRED
     Dates: start: 20190110
  21. COLECALCIFEROL [Concomitant]
     Active Substance: CHOLECALCIFEROL
     Dates: start: 20190322

REACTIONS (3)
  - Nightmare [Recovered/Resolved]
  - Nausea [Recovered/Resolved]
  - Headache [Recovered/Resolved]

NARRATIVE: CASE EVENT DATE: 20190822
